FAERS Safety Report 11885312 (Version 1)
Quarter: 2016Q1

REPORT INFORMATION
  Report Type: Report from Study
  Country: US (occurrence: US)
  Receive Date: 20160104
  Receipt Date: 20160104
  Transmission Date: 20160526
  Serious: Yes (Other)
  Sender: FDA-Public Use
  Company Number: US-JNJFOC-20151225306

PATIENT
  Sex: Male
  Weight: 92.08 kg

DRUGS (9)
  1. OMEGA 3 FISH OILS [Concomitant]
     Active Substance: OMEGA-3 FATTY ACIDS
     Indication: RHEUMATOID ARTHRITIS
     Dosage: MORNING AND NIGHT
     Route: 065
  2. DULOXETINE HCL [Concomitant]
     Active Substance: DULOXETINE HYDROCHLORIDE
     Indication: DEPRESSION
     Route: 065
  3. SIMPONI ARIA [Suspect]
     Active Substance: GOLIMUMAB
     Indication: RHEUMATOID ARTHRITIS
     Route: 042
     Dates: start: 2014, end: 2015
  4. DULOXETINE HCL [Concomitant]
     Active Substance: DULOXETINE HYDROCHLORIDE
     Indication: ANXIETY
     Route: 065
  5. NAPROXEN. [Concomitant]
     Active Substance: NAPROXEN
     Indication: INFLAMMATION
     Route: 048
  6. OMEPRAZOLE. [Concomitant]
     Active Substance: OMEPRAZOLE
     Indication: HYPERCHLORHYDRIA
     Dosage: MORNING AND NIGHT
     Route: 065
  7. LEVOTHYROXINE. [Concomitant]
     Active Substance: LEVOTHYROXINE
     Indication: THYROID DISORDER
     Route: 065
  8. LOVASTATIN. [Concomitant]
     Active Substance: LOVASTATIN
     Indication: BLOOD CHOLESTEROL
     Route: 065
  9. ALFUZOSINE HCL [Concomitant]
     Active Substance: ALFUZOSIN HYDROCHLORIDE
     Indication: PROSTATIC DISORDER
     Route: 065

REACTIONS (1)
  - Malignant melanoma [Unknown]

NARRATIVE: CASE EVENT DATE: 2015
